FAERS Safety Report 7890007-4 (Version None)
Quarter: 2011Q4

REPORT INFORMATION
  Report Type: 
  Country: None (occurrence: None)
  Receive Date: 20111103
  Receipt Date: 20111026
  Transmission Date: 20120403
  Serious: Yes (Hospitalization, Disabling, Other)
  Sender: FDA-Public Use
  Company Number: PHEH2009US04653

PATIENT
  Sex: Female

DRUGS (24)
  1. HEPARIN [Concomitant]
  2. ATENOLOL [Concomitant]
     Indication: HYPERTENSION
  3. INSULIN [Concomitant]
     Indication: DIABETES MELLITUS
  4. LIPITOR [Concomitant]
     Dosage: 10 MG, QD
     Route: 048
  5. MAGNESIUM OXIDE [Concomitant]
     Dosage: 400 MG, BID
     Route: 048
  6. NOVOLOG [Concomitant]
     Dosage: 25 U, TID
  7. ALPRAZOLAM [Concomitant]
     Dosage: 0.25 MG, PRN
  8. PROAIR HFA (ALBUTEROL SULFATE) INHALATION AEROSOL [Concomitant]
     Dosage: 90 MCG
  9. LASIX [Concomitant]
  10. COLCHICINE [Concomitant]
     Dosage: 0.6 MG,
     Route: 048
  11. ZOLOFT [Concomitant]
     Dosage: 50 MG, QD
     Route: 048
  12. AREDIA [Suspect]
     Dates: start: 20021201, end: 20080501
  13. ALLOPURINOL [Concomitant]
     Dosage: 100 MG, QOD
     Route: 048
  14. BENICAR [Concomitant]
     Route: 048
  15. TRICOR [Concomitant]
     Dosage: 145 MG, QD
     Route: 048
  16. GLUCOPHAGE [Concomitant]
     Indication: DIABETES MELLITUS
  17. FASLODEX [Concomitant]
  18. ZOCOR [Concomitant]
  19. HUMALOG [Concomitant]
  20. ACETAMINOPHEN [Concomitant]
  21. SYNTHROID [Concomitant]
     Route: 048
  22. LEVAQUIN [Concomitant]
     Dosage: 500 MG ONE DAILY
  23. XELODA [Concomitant]
  24. BENICAR [Concomitant]
     Route: 048

REACTIONS (39)
  - EXPOSED BONE IN JAW [None]
  - DYSPNOEA [None]
  - CHRONIC SINUSITIS [None]
  - NAUSEA [None]
  - HYPOGLYCAEMIA [None]
  - RASH [None]
  - PYREXIA [None]
  - VOMITING [None]
  - HYPOTHYROIDISM [None]
  - OSTEONECROSIS OF JAW [None]
  - HYPOAESTHESIA [None]
  - METASTASES TO BONE [None]
  - HYPOMAGNESAEMIA [None]
  - OBESITY [None]
  - FATIGUE [None]
  - INJURY [None]
  - PHYSICAL DISABILITY [None]
  - CHOLELITHIASIS [None]
  - ASCITES [None]
  - HEPATIC STEATOSIS [None]
  - DEHYDRATION [None]
  - WEIGHT DECREASED [None]
  - GOUT [None]
  - OEDEMA PERIPHERAL [None]
  - HYPERCHOLESTEROLAEMIA [None]
  - ASTHMA [None]
  - HYPOCALCAEMIA [None]
  - DIABETIC KETOACIDOSIS [None]
  - CARDIOMEGALY [None]
  - UPPER RESPIRATORY TRACT INFECTION [None]
  - PAIN [None]
  - ANXIETY [None]
  - TOOTH LOSS [None]
  - PURULENT DISCHARGE [None]
  - DRUG HYPERSENSITIVITY [None]
  - HYPOKALAEMIA [None]
  - METASTASES TO LUNG [None]
  - METASTASES TO SKIN [None]
  - BONE PAIN [None]
